FAERS Safety Report 24425647 (Version 1)
Quarter: 2024Q4

REPORT INFORMATION
  Report Type: Spontaneous
  Country: ES (occurrence: ES)
  Receive Date: 20241011
  Receipt Date: 20241011
  Transmission Date: 20250114
  Serious: Yes (Other)
  Sender: JOHNSON AND JOHNSON
  Company Number: None

PATIENT
  Age: 21 Year
  Sex: Male
  Weight: 70 kg

DRUGS (2)
  1. CONCERTA [Suspect]
     Active Substance: METHYLPHENIDATE HYDROCHLORIDE
     Indication: Attention deficit hyperactivity disorder
     Dosage: 1 COMPRIMIDO AL DIA
     Route: 048
     Dates: start: 20240916
  2. SERTRALINE [Concomitant]
     Active Substance: SERTRALINE HYDROCHLORIDE
     Indication: Mixed anxiety and depressive disorder
     Dosage: UN COMPRIMIDO POR LA MA ANA
     Route: 048
     Dates: start: 20240506

REACTIONS (6)
  - Tachycardia [Unknown]
  - Decreased appetite [Unknown]
  - Abnormal sensation in eye [Unknown]
  - Akathisia [Unknown]
  - Diabetes insipidus [Unknown]
  - Headache [Unknown]

NARRATIVE: CASE EVENT DATE: 20240916
